FAERS Safety Report 14092602 (Version 1)
Quarter: 2017Q4

REPORT INFORMATION
  Report Type: Not Available
  Country: US (occurrence: US)
  Receive Date: 20171016
  Receipt Date: 20171016
  Transmission Date: 20180321
  Serious: Yes (Other)
  Sender: FDA-Public Use
  Company Number: US-IDTAUSTRALIA-2017-US-011632

PATIENT
  Age: 57 Year
  Sex: Female

DRUGS (8)
  1. LINEZOLID. [Suspect]
     Active Substance: LINEZOLID
     Dosage: 600 MG TWICE DAILY
  2. MIDODRINE [Concomitant]
     Active Substance: MIDODRINE
  3. PANTOPRAZOLE [Concomitant]
     Active Substance: PANTOPRAZOLE
  4. ALBUTEROL INHALER [Concomitant]
     Active Substance: ALBUTEROL
     Route: 055
  5. FLUCONAZOLE (NON-SPECIFIC) [Suspect]
     Active Substance: FLUCONAZOLE
     Dosage: 200 MG/DAY
  6. CITALOPRAM [Suspect]
     Active Substance: CITALOPRAM HYDROBROMIDE
  7. TRAMADOL. [Suspect]
     Active Substance: TRAMADOL
  8. IPRATROPIUM BROMIDE INHALER [Concomitant]
     Route: 055

REACTIONS (2)
  - Serotonin syndrome [Unknown]
  - Drug interaction [Unknown]
